FAERS Safety Report 4930408-7 (Version None)
Quarter: 2006Q1

REPORT INFORMATION
  Report Type: 
  Country: None (occurrence: None)
  Receive Date: 20060228
  Receipt Date: 20060208
  Transmission Date: 20060701
  Serious: Yes (Hospitalization)
  Sender: FDA-Public Use
  Company Number: US200602000942

PATIENT
  Age: 37 Year
  Sex: Male
  Weight: 77 kg

DRUGS (16)
  1. PEMETREXED(PEMETREXED UNKNOWN FORMULATION) UNKNOWN [Suspect]
     Indication: NEUROENDOCRINE TUMOUR
     Dosage: 500 MG/M2, OTHER, INTRAVENOUS
     Route: 042
     Dates: start: 20051223, end: 20060113
  2. COLACE (DOSCUATE SODIUM) [Concomitant]
  3. FOLIC ACID [Concomitant]
  4. COMPAZINE [Concomitant]
  5. DECARDON (DEXANETHASONE) [Concomitant]
  6. DOXAZOSIN (DOXAZOSIN) [Concomitant]
  7. LABETALOL HCL [Concomitant]
  8. LACTULOSE [Concomitant]
  9. LEVOXYL [Concomitant]
  10. NORVASC   /DEN/ (AMLODIPINE BESILATE) [Concomitant]
  11. OXYCODONE HCL [Concomitant]
  12. OXYCONTIN [Concomitant]
  13. PROTONIX [Concomitant]
  14. SENNA (SENNA) [Concomitant]
  15. NEURONTIN [Concomitant]
  16. VITAMIN B12 [Concomitant]

REACTIONS (4)
  - HYDRONEPHROSIS [None]
  - HYPERCHOLESTEROLAEMIA [None]
  - HYPERTRIGLYCERIDAEMIA [None]
  - NEPHROTIC SYNDROME [None]
